FAERS Safety Report 8623891-7 (Version None)
Quarter: 2012Q3

REPORT INFORMATION
  Report Type: 
  Country: None (occurrence: None)
  Receive Date: 20120827
  Receipt Date: 20120815
  Transmission Date: 20120928
  Serious: Yes (Other)
  Sender: FDA-Public Use
  Company Number: JP-CUBIST-2012S1000706

PATIENT
  Age: 84 Year
  Sex: Male

DRUGS (2)
  1. VANCOMYCIN [Concomitant]
     Indication: PRODUCT USED FOR UNKNOWN INDICATION
     Dates: start: 20120808
  2. CUBICIN [Suspect]
     Indication: POSTOPERATIVE WOUND INFECTION
     Route: 042
     Dates: start: 20120810

REACTIONS (3)
  - EOSINOPHIL COUNT INCREASED [None]
  - RENAL IMPAIRMENT [None]
  - HENOCH-SCHONLEIN PURPURA [None]
